FAERS Safety Report 10443250 (Version 4)
Quarter: 2014Q4

REPORT INFORMATION
  Report Type: Report from Study
  Country: CA (occurrence: CA)
  Receive Date: 20140910
  Receipt Date: 20141204
  Transmission Date: 20150528
  Serious: Yes (Hospitalization)
  Sender: FDA-Public Use
  Company Number: CA-AMGEN-CANSP2014051725

PATIENT
  Age: 79 Year
  Sex: Female

DRUGS (11)
  1. HYDROMORPH CONTIN [Concomitant]
     Active Substance: HYDROMORPHONE
  2. SENOKOT [Concomitant]
     Active Substance: SENNOSIDES
  3. FERROUS FUMARATE [Concomitant]
     Active Substance: FERROUS FUMARATE
  4. ATORVASTATIN [Concomitant]
     Active Substance: ATORVASTATIN
  5. NEURONTIN [Concomitant]
     Active Substance: GABAPENTIN
  6. COLACE [Concomitant]
     Active Substance: DOCUSATE SODIUM
  7. AVAPRO [Concomitant]
     Active Substance: IRBESARTAN
  8. FUROSEMIDE. [Concomitant]
     Active Substance: FUROSEMIDE
  9. VITAMIN D                          /00107901/ [Concomitant]
     Active Substance: ERGOCALCIFEROL
  10. PROLIA [Suspect]
     Active Substance: DENOSUMAB
     Indication: OSTEOPOROSIS POSTMENOPAUSAL
     Dosage: 60 MG, Q6MO
     Route: 058
     Dates: start: 20140412
  11. SYNTHROID [Concomitant]
     Active Substance: LEVOTHYROXINE SODIUM

REACTIONS (15)
  - Peripheral swelling [Unknown]
  - Arrhythmia [Unknown]
  - Rash pruritic [Unknown]
  - Pruritus [Recovering/Resolving]
  - Erythema [Unknown]
  - Blood pressure abnormal [Unknown]
  - Stupor [Unknown]
  - Secretion discharge [Unknown]
  - Pyrexia [Unknown]
  - Scratch [Unknown]
  - Rash [Not Recovered/Not Resolved]
  - Dry skin [Unknown]
  - Pain in extremity [Unknown]
  - Sleep disorder due to general medical condition, insomnia type [Unknown]
  - Skin haemorrhage [Unknown]
